FAERS Safety Report 19593655 (Version 4)
Quarter: 2022Q3

REPORT INFORMATION
  Report Type: Spontaneous
  Country: US (occurrence: US)
  Receive Date: 20210722
  Receipt Date: 20220817
  Transmission Date: 20221027
  Serious: Yes (Life-Threatening, Hospitalization, Other)
  Sender: FDA-Public Use
  Company Number: US-RECORDATI RARE DISEASE INC.-2021002734

PATIENT
  Age: 33 Year
  Sex: Male
  Weight: 115 kg

DRUGS (14)
  1. DACTINOMYCIN [Suspect]
     Active Substance: DACTINOMYCIN
     Indication: Alveolar rhabdomyosarcoma
     Dosage: 0.05 MG/KG, CYCLICALLY OVER 1-5 MINUTES ON DAYS: 1 OF CYCLES 1 AND 3 (FOR CYCLES 1-4); 1 OF CYCLES 5
     Route: 042
     Dates: start: 20190808, end: 20200217
  2. TEMSIROLIMUS [Suspect]
     Active Substance: TEMSIROLIMUS
     Indication: Alveolar rhabdomyosarcoma
     Dosage: 15 MILLIGRAM/SQ. METER, CYCLICAL, OVER 30-60 MINUTES ON DAYS: 1, 8, 15, (FOR CYCLES 1-4); 1, 8, 15 O
     Route: 042
     Dates: start: 20190808, end: 20200323
  3. IRINOTECAN [Suspect]
     Active Substance: IRINOTECAN
     Indication: Alveolar rhabdomyosarcoma
     Dosage: 50 MILLIGRAM/SQ. METER, CYCLICAL, OVER 90 MINUTES ON DAYS; 1-5 OF CYCLES 2 AND 4 (FOR CYCLES 1-4); 1
     Route: 041
     Dates: start: 20190826, end: 20200313
  4. VINCRISTINE SULFATE [Suspect]
     Active Substance: VINCRISTINE SULFATE
     Indication: Alveolar rhabdomyosarcoma
     Dosage: 1.5 MILLIGRAM/SQ. METER, CYCLICAL, OVER 1 MINUTE ON DAYS: 1, 8, 15 (FOR CYCLES 1-4); 1 OF CYCLES 5 A
     Route: 041
     Dates: start: 20190808, end: 20191021
  5. CYCLOPHOSPHAMIDE [Suspect]
     Active Substance: CYCLOPHOSPHAMIDE
     Indication: Alveolar rhabdomyosarcoma
     Dosage: 1200 MILLIGRAM/SQ. METER, CYCLICAL OVER 60 MINUTES ON DAYS: 1 OF CYCLES 1 AND 3 (FOR CYCLES 1-4); 1
     Route: 041
     Dates: start: 20190808, end: 20200217
  6. DIAZEPAM [Concomitant]
     Active Substance: DIAZEPAM
     Dosage: UNK
     Route: 065
  7. DULOXETINE [Concomitant]
     Active Substance: DULOXETINE
     Dosage: UNK
     Route: 065
  8. LORAZEPAM [Concomitant]
     Active Substance: LORAZEPAM
     Dosage: UNK
     Route: 065
  9. LYRICA [Concomitant]
     Active Substance: PREGABALIN
     Dosage: UNK
     Route: 065
  10. OLANZAPINE [Concomitant]
     Active Substance: OLANZAPINE
     Dosage: UNK
     Route: 065
  11. OXYCODONE [Concomitant]
     Active Substance: OXYCODONE
     Dosage: UNK
     Route: 065
  12. OXYCONTIN [Concomitant]
     Active Substance: OXYCODONE HYDROCHLORIDE
     Dosage: UNK
     Route: 065
  13. ZOFRAN [Concomitant]
     Active Substance: ONDANSETRON HYDROCHLORIDE
     Dosage: UNK
     Route: 065
  14. ZYPREXA [Concomitant]
     Active Substance: OLANZAPINE
     Dosage: UNK
     Route: 065

REACTIONS (9)
  - Respiratory failure [Unknown]
  - Immunodeficiency [Unknown]
  - Pneumonia [Unknown]
  - Varicella zoster virus infection [Unknown]
  - Asthenia [Unknown]
  - Failure to thrive [Unknown]
  - Facial pain [Unknown]
  - Mental status changes [Recovering/Resolving]
  - Septic shock [Unknown]

NARRATIVE: CASE EVENT DATE: 20200330
